FAERS Safety Report 4709223-5 (Version None)
Quarter: 2005Q3

REPORT INFORMATION
  Report Type: 
  Country: None (occurrence: None)
  Receive Date: 20050705
  Receipt Date: 20050622
  Transmission Date: 20060218
  Serious: Yes (Hospitalization, Other)
  Sender: FDA-Public Use
  Company Number: 215201

PATIENT
  Age: 40 Year
  Sex: Male
  Weight: 118.8 kg

DRUGS (2)
  1. XOLAIR [Suspect]
     Indication: ASTHMA
     Dates: start: 20040112
  2. ALLERGY IMMUNOTHERAPY (ALLERGENIC EXTRACTS) [Concomitant]

REACTIONS (3)
  - DIZZINESS EXERTIONAL [None]
  - DYSPNOEA [None]
  - TRANSIENT ISCHAEMIC ATTACK [None]
